FAERS Safety Report 16737191 (Version 2)
Quarter: 2019Q4

REPORT INFORMATION
  Report Type: Spontaneous
  Country: US (occurrence: US)
  Receive Date: 20190823
  Receipt Date: 20191014
  Transmission Date: 20200122
  Serious: Yes (Other)
  Sender: FDA-Public Use
  Company Number: US-BAYER-2019-151045

PATIENT
  Age: 21 Year
  Sex: Female

DRUGS (4)
  1. ASPIRIN (CARDIO) [Concomitant]
  2. ADEMPAS [Suspect]
     Active Substance: RIOCIGUAT
     Indication: PULMONARY HYPERTENSION
  3. AMLODIPINE [Concomitant]
     Active Substance: AMLODIPINE BESYLATE
     Dosage: 10 MG/DAY OR 0.11 MG/KG/DAY
  4. VITAMINS NOS [Concomitant]
     Active Substance: VITAMINS

REACTIONS (4)
  - Dyspnoea exertional [Recovered/Resolved]
  - Gastrooesophageal reflux disease [None]
  - Presyncope [Recovered/Resolved]
  - Oesophageal pain [None]
